FAERS Safety Report 7214320-9 (Version None)
Quarter: 2011Q1

REPORT INFORMATION
  Report Type: 
  Country: None (occurrence: None)
  Receive Date: 20110107
  Receipt Date: 20101228
  Transmission Date: 20110831
  Serious: Yes (Other)
  Sender: FDA-Public Use
  Company Number: PHHY2010CA32225

PATIENT
  Sex: Female

DRUGS (6)
  1. CALCIUM [Concomitant]
  2. CELEBREX [Concomitant]
     Indication: ARTHRALGIA
     Dosage: 200 DAILY PRN
  3. VITAMIN D [Concomitant]
     Dosage: 400 BID
  4. COLACE [Concomitant]
     Dosage: 100 MG 2 BID
  5. NEXIUM [Concomitant]
     Dosage: 40 DAILY PRN
  6. ACLASTA [Suspect]
     Indication: OSTEOPOROSIS
     Dosage: 5 MG
     Route: 042
     Dates: start: 20100112

REACTIONS (7)
  - NASOPHARYNGITIS [None]
  - MYALGIA [None]
  - RENAL CANCER [None]
  - RENAL SURGERY [None]
  - BACK PAIN [None]
  - INFLUENZA [None]
  - ARTHRALGIA [None]
